FAERS Safety Report 7998001-X (Version None)
Quarter: 2011Q4

REPORT INFORMATION
  Report Type: 
  Country: None (occurrence: None)
  Receive Date: 20111221
  Receipt Date: 20110513
  Transmission Date: 20120403
  Serious: No
  Sender: FDA-Public Use
  Company Number: US-GLAXOSMITHKLINE-A0878662A

PATIENT
  Age: 65 Year
  Sex: Male
  Weight: 97.7 kg

DRUGS (10)
  1. TRICOR [Concomitant]
  2. YEAST TABLET [Concomitant]
  3. VASOTEC [Concomitant]
  4. ZOCOR [Concomitant]
  5. TRILIPIX [Concomitant]
  6. LOPID [Concomitant]
  7. LOVAZA [Suspect]
     Indication: BLOOD TRIGLYCERIDES INCREASED
     Dosage: 2CAP TWICE PER DAY
     Route: 048
     Dates: end: 20110401
  8. C-PAP MACHINE [Concomitant]
  9. XANAX [Concomitant]
  10. VITAMIN B-12 [Concomitant]

REACTIONS (8)
  - DRUG INEFFECTIVE [None]
  - FAECES DISCOLOURED [None]
  - NAUSEA [None]
  - FATIGUE [None]
  - DYSGEUSIA [None]
  - DRY MOUTH [None]
  - ABDOMINAL PAIN UPPER [None]
  - DECREASED APPETITE [None]
